FAERS Safety Report 13736628 (Version 2)
Quarter: 2017Q3

REPORT INFORMATION
  Report Type: Other
  Country: FR (occurrence: FR)
  Receive Date: 20170710
  Receipt Date: 20170718
  Transmission Date: 20171127
  Serious: Yes (Hospitalization)
  Sender: FDA-Public Use
  Company Number: FR-LEADIANT BIOSCIENCES INC-2017STPI000519

PATIENT
  Age: 33 Year
  Sex: Male

DRUGS (11)
  1. MESNA. [Suspect]
     Active Substance: MESNA
     Indication: LYMPHOMA
     Dosage: 100 MG, QD
     Route: 041
     Dates: start: 20170513, end: 20170515
  2. ENDOXAN                            /00021101/ [Suspect]
     Active Substance: CYCLOPHOSPHAMIDE
     Indication: LYMPHOMA
     Dosage: 2.3 G, QD
     Route: 041
     Dates: start: 20170513, end: 20170515
  3. BACTRIM [Concomitant]
     Active Substance: SULFAMETHOXAZOLE\TRIMETHOPRIM
     Indication: PRODUCT USED FOR UNKNOWN INDICATION
     Dosage: UNK, QD
     Route: 048
     Dates: start: 20170516
  4. CAELYX [Suspect]
     Active Substance: DOXORUBICIN HYDROCHLORIDE
     Indication: LYMPHOMA
     Dosage: 70 MG, QD
     Route: 041
     Dates: start: 20170513, end: 20170515
  5. METHYLPREDNISOLONE MYLAN           /00049604/ [Suspect]
     Active Substance: METHYLPREDNISOLONE HEMISUCCINATE
     Indication: LYMPHOMA
     Dosage: 60 MG, QD
     Route: 042
     Dates: start: 20170513, end: 20170515
  6. ONDANSETRON ACCORD [Suspect]
     Active Substance: ONDANSETRON
     Indication: LYMPHOMA
     Dosage: 8 MG, QD
     Route: 042
     Dates: start: 20170513, end: 20170515
  7. AUGMENTIN [Concomitant]
     Active Substance: AMOXICILLIN\CLAVULANATE POTASSIUM
     Indication: PRODUCT USED FOR UNKNOWN INDICATION
     Dosage: UNK
     Route: 048
     Dates: start: 20170516, end: 20170525
  8. ZELITREX [Concomitant]
     Active Substance: VALACYCLOVIR HYDROCHLORIDE
     Indication: PRODUCT USED FOR UNKNOWN INDICATION
     Dosage: UNK
     Route: 048
     Dates: start: 20170516
  9. ETOPOSIDE MYLAN [Suspect]
     Active Substance: ETOPOSIDE
     Indication: LYMPHOMA
     Dosage: 360 MG, QD
     Route: 041
     Dates: start: 20170514, end: 20170515
  10. MATULANE [Suspect]
     Active Substance: PROCARBAZINE HYDROCHLORIDE
     Indication: LYMPHOMA
     Dosage: 185 MG, QD
     Route: 048
     Dates: start: 20170513, end: 20170515
  11. SPECIAFOLDINE [Concomitant]
     Active Substance: FOLIC ACID
     Indication: PRODUCT USED FOR UNKNOWN INDICATION
     Dosage: UNK
     Route: 048
     Dates: start: 20170516

REACTIONS (1)
  - Posterior reversible encephalopathy syndrome [Recovered/Resolved]

NARRATIVE: CASE EVENT DATE: 20170517
